FAERS Safety Report 8374316-0 (Version None)
Quarter: 2012Q2

REPORT INFORMATION
  Report Type: 
  Country: None (occurrence: None)
  Receive Date: 20120521
  Receipt Date: 20120510
  Transmission Date: 20120825
  Serious: Yes (Hospitalization, Other)
  Sender: FDA-Public Use
  Company Number: CH-ASTRAZENECA-2012SE30493

PATIENT
  Age: 55 Year
  Sex: Male

DRUGS (9)
  1. GLUCOPHAGE [Concomitant]
     Route: 048
  2. CRESTOR [Concomitant]
     Route: 048
  3. ZOLPIDEM TARTRATE [Concomitant]
     Route: 048
  4. ENALAPRIL MALEATE [Concomitant]
     Route: 048
  5. NEXIUM [Suspect]
     Route: 048
     Dates: start: 20120404, end: 20120408
  6. PAROXETINE HCL [Concomitant]
     Route: 048
  7. ASPIRIN [Concomitant]
     Route: 048
  8. METOPROLOL TARTRATE AND HYDROCHLOROTHIAZIDE [Concomitant]
     Route: 048
  9. EFFIENT [Concomitant]
     Route: 048

REACTIONS (3)
  - EOSINOPHILIA [None]
  - RASH [None]
  - CARDIAC FAILURE [None]
